FAERS Safety Report 11360045 (Version 1)
Quarter: 2015Q3

REPORT INFORMATION
  Report Type: Spontaneous
  Country: KR (occurrence: KR)
  Receive Date: 20150810
  Receipt Date: 20150810
  Transmission Date: 20151125
  Serious: Yes (Hospitalization)
  Sender: FDA-Public Use
  Company Number: KR-ORION CORPORATION ORION PHARMA-ENTC2015-0433

PATIENT
  Age: 77 Year
  Sex: Male

DRUGS (1)
  1. STALEVO [Suspect]
     Active Substance: CARBIDOPA\ENTACAPONE\LEVODOPA
     Route: 065

REACTIONS (3)
  - Diarrhoea [Unknown]
  - Orthostatic hypotension [Unknown]
  - Weight decreased [Unknown]
